FAERS Safety Report 23820603 (Version 1)
Quarter: 2024Q2

REPORT INFORMATION
  Report Type: Spontaneous
  Country: US (occurrence: US)
  Receive Date: 20240506
  Receipt Date: 20240506
  Transmission Date: 20240716
  Serious: Yes (Other)
  Sender: FDA-Public Use
  Company Number: US-MYLANLABS-2024M1040646

PATIENT
  Age: 68 Year
  Sex: Female

DRUGS (3)
  1. PREDNISONE [Suspect]
     Active Substance: PREDNISONE
     Indication: Pachymeningitis
     Dosage: 60 MILLIGRAM, QD
     Route: 048
  2. PREDNISONE [Suspect]
     Active Substance: PREDNISONE
     Dosage: UNK, UNSPECIFIED TAPERED DOSE
     Route: 048
  3. METHOTREXATE [Suspect]
     Active Substance: METHOTREXATE
     Indication: Pachymeningitis
     Dosage: 15 MILLIGRAM, QW
     Route: 065

REACTIONS (3)
  - Rebound effect [Unknown]
  - Drug ineffective for unapproved indication [Unknown]
  - Off label use [Unknown]
